FAERS Safety Report 11761623 (Version 1)
Quarter: 2015Q4

REPORT INFORMATION
  Report Type: Spontaneous
  Country: US (occurrence: US)
  Receive Date: 20151120
  Receipt Date: 20151120
  Transmission Date: 20160304
  Serious: Yes (Hospitalization, Other)
  Sender: FDA-Public Use
  Company Number: US-ELI_LILLY_AND_COMPANY-US201511005620

PATIENT
  Age: 89 Year
  Sex: Female

DRUGS (2)
  1. HUMALOG [Suspect]
     Active Substance: INSULIN LISPRO
     Indication: TYPE 1 DIABETES MELLITUS
     Dosage: UNK, PRN
     Route: 065
     Dates: start: 2000
  2. LANTUS [Concomitant]
     Active Substance: INSULIN GLARGINE

REACTIONS (8)
  - Product quality issue [None]
  - Blood glucose decreased [Unknown]
  - Fall [Recovered/Resolved]
  - Fatigue [Unknown]
  - Incorrect product storage [Unknown]
  - Blood glucose increased [Unknown]
  - Wrong technique in product usage process [None]
  - Device malfunction [None]

NARRATIVE: CASE EVENT DATE: 201507
